FAERS Safety Report 17059127 (Version 4)
Quarter: 2021Q1

REPORT INFORMATION
  Report Type: Spontaneous
  Country: US (occurrence: US)
  Receive Date: 20191121
  Receipt Date: 20210215
  Transmission Date: 20210419
  Serious: No
  Sender: FDA-Public Use
  Company Number: US-PFIZER INC-2019503703

PATIENT
  Age: 58 Year
  Sex: Female

DRUGS (5)
  1. LETROZOLE. [Concomitant]
     Active Substance: LETROZOLE
     Dosage: UNK
  2. GABAPENTIN. [Concomitant]
     Active Substance: GABAPENTIN
     Dosage: UNK
  3. TRAMADOL. [Concomitant]
     Active Substance: TRAMADOL
     Dosage: UNK
  4. IBRANCE [Suspect]
     Active Substance: PALBOCICLIB
     Indication: BREAST CANCER METASTATIC
     Dosage: 100 MG, CYCLIC (1 CAPSULE DAILY FOR 21 DAYS, THEN STOP FOR 7 DAYS)
     Route: 048
  5. CLENPIQ [Concomitant]
     Active Substance: ANHYDROUS CITRIC ACID\MAGNESIUM OXIDE\SODIUM PICOSULFATE
     Dosage: UNK

REACTIONS (11)
  - Nausea [Unknown]
  - Pyrexia [Unknown]
  - Nail disorder [Unknown]
  - Cough [Unknown]
  - Back pain [Unknown]
  - Alopecia [Unknown]
  - Headache [Unknown]
  - White blood cell count decreased [Unknown]
  - COVID-19 [Unknown]
  - Dyspnoea [Unknown]
  - Chest pain [Unknown]
